FAERS Safety Report 7501679-8 (Version None)
Quarter: 2011Q2

REPORT INFORMATION
  Report Type: 
  Country: None (occurrence: None)
  Receive Date: 20110525
  Receipt Date: 20110511
  Transmission Date: 20111010
  Serious: Yes (Other)
  Sender: FDA-Public Use
  Company Number: MA-MYLANLABS-2011S1009794

PATIENT
  Age: 18 Year
  Sex: Female

DRUGS (2)
  1. ETOPOSIDE [Suspect]
     Indication: GERM CELL CANCER
     Dosage: DAYS 1-3 EVERY 21 DAYS FOR 6 CYCLES
  2. CISPLATIN [Suspect]
     Indication: GERM CELL CANCER
     Dosage: DAY 1 EVERY 21 DAYS FOR 6 CYCLES
     Route: 065

REACTIONS (1)
  - OVARIAN GERM CELL TERATOMA BENIGN [None]
